FAERS Safety Report 8950274 (Version 1)
Quarter: 2012Q4

REPORT INFORMATION
  Report Type: 
  Country: CN (occurrence: CN)
  Receive Date: 20121205
  Receipt Date: 20121205
  Transmission Date: 20130627
  Serious: Yes (Other)
  Sender: FDA-Public Use
  Company Number: PHHY2012CN108995

PATIENT
  Age: 75 Year
  Sex: Female
  Weight: 32 kg

DRUGS (1)
  1. LOTENSIN [Suspect]
     Indication: HYPERTENSION
     Dosage: 10 mg, qd, orally
     Route: 048
     Dates: start: 20101030, end: 20101103

REACTIONS (5)
  - Cardiac failure acute [Recovering/Resolving]
  - Blood pressure diastolic decreased [Recovering/Resolving]
  - Palpitations [Recovering/Resolving]
  - Dyspnoea [Recovering/Resolving]
  - Cough [Recovering/Resolving]
